FAERS Safety Report 12446978 (Version 1)
Quarter: 2016Q2

REPORT INFORMATION
  Report Type: Report from Study
  Country: AR (occurrence: AR)
  Receive Date: 20160608
  Receipt Date: 20160608
  Transmission Date: 20160815
  Serious: Yes (Other)
  Sender: FDA-Public Use
  Company Number: PHHY2016AR066109

PATIENT
  Age: 65 Year
  Sex: Female

DRUGS (5)
  1. DIOVAN D [Suspect]
     Active Substance: HYDROCHLOROTHIAZIDE\VALSARTAN
     Indication: HYPERTENSION
     Dosage: 2 DF (VALSARTAN 160 MG, HYDROCHLOROTHIAZIDE 12.5 MG), QD  (8 YEARS AGO)
     Route: 065
  2. ROSUVASTATIN. [Concomitant]
     Active Substance: ROSUVASTATIN
     Indication: PRODUCT USED FOR UNKNOWN INDICATION
     Dosage: UNK
     Route: 065
  3. BISOPROLOL FUMARATE. [Concomitant]
     Active Substance: BISOPROLOL FUMARATE
     Indication: CARDIAC DISORDER
     Dosage: 1 DF, QD
     Route: 065
  4. DILTIAZEM [Concomitant]
     Active Substance: DILTIAZEM
     Indication: CARDIAC DISORDER
     Dosage: 2 DF, QD
     Route: 065
  5. DIOVAN D [Suspect]
     Active Substance: HYDROCHLOROTHIAZIDE\VALSARTAN
     Dosage: 2 DF (VALSARTAN 160 MG, HYDROCHLOROTHIAZIDE 12.5 MG), QD
     Route: 065
     Dates: start: 201603

REACTIONS (5)
  - Myalgia [Unknown]
  - Osteoarthritis [Not Recovered/Not Resolved]
  - Blood pressure increased [Recovered/Resolved]
  - Arthralgia [Not Recovered/Not Resolved]
  - Intracranial aneurysm [Recovered/Resolved]

NARRATIVE: CASE EVENT DATE: 201409
